FAERS Safety Report 4733159-7 (Version None)
Quarter: 2005Q3

REPORT INFORMATION
  Report Type: 
  Country: None (occurrence: None)
  Receive Date: 20050801
  Receipt Date: 20050801
  Transmission Date: 20060218
  Serious: Yes (Hospitalization)
  Sender: FDA-Public Use
  Company Number: None

PATIENT
  Age: 79 Year
  Sex: Male

DRUGS (1)
  1. VISIPAQUE [Suspect]
     Dates: start: 20050519

REACTIONS (2)
  - CONTRAST MEDIA REACTION [None]
  - DRUG HYPERSENSITIVITY [None]
